FAERS Safety Report 5005332-4 (Version None)
Quarter: 2006Q2

REPORT INFORMATION
  Report Type: 
  Country: None (occurrence: None)
  Receive Date: 20060515
  Receipt Date: 20060505
  Transmission Date: 20061013
  Serious: Yes (Hospitalization)
  Sender: FDA-Public Use
  Company Number: 2006BI005192

PATIENT
  Age: 53 Year
  Sex: Female

DRUGS (7)
  1. AVONEX [Suspect]
     Indication: MULTIPLE SCLEROSIS
     Dosage: 30 UG QW IM
     Route: 030
     Dates: start: 20000101
  2. AVONEX [Suspect]
     Indication: MULTIPLE SCLEROSIS
     Dosage: 30 UG QW IM
     Route: 030
     Dates: start: 20031101
  3. PREVACID [Concomitant]
  4. ZELNORM [Concomitant]
  5. TRAZODONE HCL [Concomitant]
  6. COLACE [Concomitant]
  7. PERCOCET [Concomitant]

REACTIONS (3)
  - ADENOMA BENIGN [None]
  - ADNEXA UTERI MASS [None]
  - OVARIAN ADENOMA [None]
